FAERS Safety Report 9505963 (Version 1)
Quarter: 2013Q1

REPORT INFORMATION
  Report Type: Spontaneous
  Country: US (occurrence: None)
  Receive Date: 20130305
  Receipt Date: 20130305
  Transmission Date: 20140127
  Serious: No
  Sender: FDA-Public Use
  Company Number: 1000037395

PATIENT
  Age: 48 Year
  Sex: Female

DRUGS (3)
  1. DALIRESP (ROFLUMILAST) [Suspect]
     Indication: CHRONIC OBSTRUCTIVE PULMONARY DISEASE
  2. ADVAIR (SERETIDE) [Concomitant]
  3. SPIRIVA (TIOTROPIUM BROMIDE) [Concomitant]

REACTIONS (2)
  - Wheezing [None]
  - Cough [None]
